FAERS Safety Report 7734782-8 (Version None)
Quarter: 2011Q3

REPORT INFORMATION
  Report Type: 
  Country: None (occurrence: None)
  Receive Date: 20110907
  Receipt Date: 20110902
  Transmission Date: 20111222
  Serious: Yes (Life-Threatening, Hospitalization)
  Sender: FDA-Public Use
  Company Number: US-BRISTOL-MYERS SQUIBB COMPANY-16028193

PATIENT
  Age: 55 Year
  Sex: Male
  Weight: 99 kg

DRUGS (4)
  1. ERBITUX [Suspect]
     Indication: METASTASES TO LUNG
     Dates: start: 20110808
  2. ERBITUX [Suspect]
     Indication: TONGUE NEOPLASM MALIGNANT STAGE UNSPECIFIED
     Dates: start: 20110808
  3. CISPLATIN [Suspect]
     Indication: METASTASES TO LUNG
     Dates: start: 20110808
  4. CISPLATIN [Suspect]
     Indication: TONGUE NEOPLASM MALIGNANT STAGE UNSPECIFIED
     Dates: start: 20110808

REACTIONS (5)
  - BLOOD SODIUM DECREASED [None]
  - INAPPROPRIATE ANTIDIURETIC HORMONE SECRETION [None]
  - LOSS OF CONSCIOUSNESS [None]
  - RENAL DISORDER [None]
  - COLD SWEAT [None]
